FAERS Safety Report 7772222-3 (Version None)
Quarter: 2011Q3

REPORT INFORMATION
  Report Type: 
  Country: None (occurrence: None)
  Receive Date: 20110922
  Receipt Date: 20100517
  Transmission Date: 20111222
  Serious: No
  Sender: FDA-Public Use
  Company Number: US-ASTRAZENECA-2010SE48554

PATIENT
  Age: 574 Month
  Sex: Male
  Weight: 127.5 kg

DRUGS (11)
  1. TRICOR [Concomitant]
     Dates: start: 20051010
  2. FISH OIL [Concomitant]
     Dates: start: 20051010
  3. DOXAZOSIN MESYLATE [Concomitant]
     Dates: start: 20050502
  4. FUROSEMIDE [Concomitant]
     Dates: start: 20040907
  5. COLCHICINE [Concomitant]
     Dates: start: 20040809
  6. SEROQUEL [Suspect]
     Route: 048
     Dates: start: 20050421
  7. WELLBUTRIN XL [Concomitant]
     Dates: start: 20050421
  8. RISPERDAL [Concomitant]
     Dates: start: 20040809
  9. CLONAZEPAM [Concomitant]
     Dates: start: 20041025
  10. CRESTOR [Concomitant]
     Dates: start: 20051010
  11. VIAGRA [Concomitant]
     Dates: start: 20040930

REACTIONS (3)
  - HEPATIC ENZYME INCREASED [None]
  - HEPATIC STEATOSIS [None]
  - METABOLIC SYNDROME [None]
